FAERS Safety Report 13131625 (Version 1)
Quarter: 2017Q1

REPORT INFORMATION
  Report Type: Spontaneous
  Country: FR (occurrence: FR)
  Receive Date: 20170119
  Receipt Date: 20170119
  Transmission Date: 20170428
  Serious: Yes (Other)
  Sender: FDA-Public Use
  Company Number: FR-MALLINCKRODT-T201700107

PATIENT
  Age: 37 Year
  Sex: Female

DRUGS (3)
  1. REMIFENTANIL HYDROCHLORIDE [Suspect]
     Active Substance: REMIFENTANIL HYDROCHLORIDE
     Indication: ARTERIOVENOUS FISTULA
     Dosage: UNK
     Route: 042
     Dates: end: 20160924
  2. OFIRMEV [Suspect]
     Active Substance: ACETAMINOPHEN
     Indication: ARTERIOVENOUS FISTULA
     Dosage: 1 G, QCYCLE
     Route: 042
     Dates: start: 2009, end: 20161215
  3. DROPERIDOL. [Suspect]
     Active Substance: DROPERIDOL
     Indication: ARTERIOVENOUS FISTULA
     Dosage: 1 MG, UNK
     Route: 042
     Dates: end: 20160924

REACTIONS (3)
  - Erythema [Recovered/Resolved]
  - Off label use [Unknown]
  - Dermatitis bullous [Recovered/Resolved]

NARRATIVE: CASE EVENT DATE: 20160925
